FAERS Safety Report 6655752-7 (Version None)
Quarter: 2010Q1

REPORT INFORMATION
  Report Type: 
  Country: None (occurrence: None)
  Receive Date: 20100329
  Receipt Date: 20100325
  Transmission Date: 20100710
  Serious: Yes (Other)
  Sender: FDA-Public Use
  Company Number: CA-JNJFOC-20091106537

PATIENT
  Sex: Male
  Weight: 1.33 kg

DRUGS (1)
  1. REMICADE [Suspect]
     Indication: DRUG EXPOSURE DURING PREGNANCY
     Route: 042

REACTIONS (1)
  - PREMATURE BABY [None]
